FAERS Safety Report 16681355 (Version 5)
Quarter: 2019Q4

REPORT INFORMATION
  Report Type: Report from Study
  Country: None (occurrence: FR)
  Receive Date: 20190808
  Receipt Date: 20191231
  Transmission Date: 20200122
  Serious: Yes (Other)
  Sender: FDA-Public Use
  Company Number: FR-ABBVIE-19K-056-2879435-00

PATIENT
  Age: 63 Year
  Sex: Male

DRUGS (1)
  1. DUODOPA [Suspect]
     Active Substance: CARBIDOPA\LEVODOPA
     Indication: PRODUCT USED FOR UNKNOWN INDICATION
     Route: 050
     Dates: start: 20190529, end: 2019

REACTIONS (9)
  - Balance disorder [Unknown]
  - Device connection issue [Unknown]
  - Fall [Recovered/Resolved]
  - Device occlusion [Unknown]
  - Fall [Unknown]
  - Decreased appetite [Unknown]
  - Gastrointestinal disorder [Unknown]
  - Weight decreased [Unknown]
  - Mastication disorder [Unknown]

NARRATIVE: CASE EVENT DATE: 2019
